FAERS Safety Report 20612707 (Version 1)
Quarter: 2022Q1

REPORT INFORMATION
  Report Type: Spontaneous
  Country: LU (occurrence: LU)
  Receive Date: 20220318
  Receipt Date: 20220318
  Transmission Date: 20220424
  Serious: Yes (Life-Threatening, Hospitalization)
  Sender: FDA-Public Use
  Company Number: None

PATIENT
  Age: 0 Year
  Sex: Male

DRUGS (12)
  1. EPIRUBICIN [Suspect]
     Active Substance: EPIRUBICIN
     Indication: Breast cancer
     Dosage: 75 MG/M2
     Route: 064
     Dates: end: 20211001
  2. EPIRUBICIN [Suspect]
     Active Substance: EPIRUBICIN
     Dosage: 75 MG/M2
     Route: 064
     Dates: end: 20211111
  3. EPIRUBICIN [Suspect]
     Active Substance: EPIRUBICIN
     Dosage: 75 MG/M2
     Route: 064
     Dates: end: 20211014
  4. EPIRUBICIN [Suspect]
     Active Substance: EPIRUBICIN
     Dosage: 75 MG/M2
     Route: 064
     Dates: end: 20211028
  5. CYCLOPHOSPHAMIDE [Suspect]
     Active Substance: CYCLOPHOSPHAMIDE
     Indication: Breast cancer
     Dosage: 750 MG/M2
     Route: 064
     Dates: end: 20211028
  6. CYCLOPHOSPHAMIDE [Suspect]
     Active Substance: CYCLOPHOSPHAMIDE
     Dosage: 750 MG/M2
     Route: 064
     Dates: end: 20211014
  7. CYCLOPHOSPHAMIDE [Suspect]
     Active Substance: CYCLOPHOSPHAMIDE
     Dosage: 750 MG/M2
     Route: 064
     Dates: end: 20211111
  8. CYCLOPHOSPHAMIDE [Suspect]
     Active Substance: CYCLOPHOSPHAMIDE
     Dosage: 750 MG/M2
     Route: 064
     Dates: end: 20211001
  9. TAXOL [Suspect]
     Active Substance: PACLITAXEL
     Indication: Breast cancer
     Dosage: 40 MG/M2
     Route: 064
     Dates: end: 20211209
  10. TAXOL [Suspect]
     Active Substance: PACLITAXEL
     Dosage: 70 MG/M2
     Route: 064
  11. TAXOL [Suspect]
     Active Substance: PACLITAXEL
     Dosage: 40 MG/M2
     Route: 064
     Dates: end: 20211202
  12. TAXOL [Suspect]
     Active Substance: PACLITAXEL
     Dosage: 40 MG/M2
     Route: 064
     Dates: end: 20211216

REACTIONS (2)
  - Necrotising colitis [Recovered/Resolved]
  - Premature baby [Recovering/Resolving]

NARRATIVE: CASE EVENT DATE: 20210111
